FAERS Safety Report 20186777 (Version 1)
Quarter: 2021Q4

REPORT INFORMATION
  Report Type: Spontaneous
  Country: US (occurrence: US)
  Receive Date: 20211215
  Receipt Date: 20211215
  Transmission Date: 20220303
  Serious: No
  Sender: FDA-Public Use
  Company Number: US-ALVOGEN-2021-ALVOGEN-117905

PATIENT
  Age: 60 Year
  Sex: Female

DRUGS (1)
  1. LEVOTHYROXINE [Suspect]
     Active Substance: LEVOTHYROXINE
     Indication: Hypothyroidism
     Dates: start: 2019

REACTIONS (7)
  - Paraesthesia [Unknown]
  - Pain [Unknown]
  - Gait disturbance [Unknown]
  - Bone pain [Unknown]
  - Pain in extremity [Unknown]
  - Arthritis [Unknown]
  - Product substitution issue [Unknown]
